FAERS Safety Report 14261066 (Version 1)
Quarter: 2017Q4

REPORT INFORMATION
  Report Type: Spontaneous
  Country: US (occurrence: US)
  Receive Date: 20171207
  Receipt Date: 20171207
  Transmission Date: 20180321
  Serious: No
  Sender: FDA-Public Use
  Company Number: US-TOLMAR, INC.-TOLG20170522

PATIENT

DRUGS (1)
  1. CLINDAMYCIN AND BENZOYL PEROXIDE [Suspect]
     Active Substance: BENZOYL PEROXIDE\CLINDAMYCIN PHOSPHATE
     Indication: PRODUCT USED FOR UNKNOWN INDICATION
     Dosage: APPLY TO FACE
     Route: 061

REACTIONS (3)
  - Drug ineffective [Unknown]
  - Skin disorder [Unknown]
  - Hypersensitivity [Unknown]
